FAERS Safety Report 6977896-2 (Version None)
Quarter: 2010Q3

REPORT INFORMATION
  Report Type: 
  Country: None (occurrence: None)
  Receive Date: 20100913
  Receipt Date: 20100903
  Transmission Date: 20110219
  Serious: Yes (Hospitalization)
  Sender: FDA-Public Use
  Company Number: US-SHIRE-ALL1-2010-04665

PATIENT
  Sex: Male
  Weight: 63.492 kg

DRUGS (9)
  1. FOSRENOL [Suspect]
     Indication: NEPHROPATHY
     Dosage: 1000 MG, 3X/DAY:TID
     Route: 048
     Dates: start: 20071101, end: 20100831
  2. FOSRENOL [Suspect]
     Indication: HYPERPHOSPHATAEMIA
     Dosage: 1000 MG, OTHER (FIVE TIMES IN TWO DAYS)
     Route: 048
     Dates: start: 20100901
  3. CLONIDINE [Concomitant]
     Indication: HYPERTENSION
     Dosage: 10 MG, 3X/DAY:TID
     Route: 048
     Dates: start: 20070101
  4. NORVASC [Concomitant]
     Indication: HYPERTENSION
     Dosage: 10 MG, 1X/DAY:QD
     Route: 048
     Dates: start: 20070101
  5. PROTONIX [Concomitant]
     Indication: GASTRIC DISORDER
     Dosage: 10 MG, 1X/DAY:QD
     Route: 048
     Dates: start: 20070101
  6. METOPROLOL TARTRATE [Concomitant]
     Indication: CARDIOVASCULAR EVENT PROPHYLAXIS
     Dosage: 50 MG, 2X/DAY:BID
     Route: 048
     Dates: start: 20070101
  7. NOVOLOG [Concomitant]
     Indication: DIABETES MELLITUS
     Dosage: UNK, 1X/DAY:QD (SLIDING SCALE)
     Route: 058
     Dates: start: 20070101
  8. SIMVASTATIN [Concomitant]
     Indication: BLOOD CHOLESTEROL
     Dosage: 40 MG, 1X/DAY:QD
     Route: 048
     Dates: start: 20070101
  9. LANTUS                             /01483501/ [Concomitant]
     Indication: DIABETES MELLITUS
     Dosage: 16 IU, 1X/DAY:QD
     Route: 058
     Dates: start: 20070101

REACTIONS (2)
  - CEREBRAL HAEMORRHAGE [None]
  - NAUSEA [None]
